FAERS Safety Report 7826677-6 (Version None)
Quarter: 2011Q4

REPORT INFORMATION
  Report Type: 
  Country: None (occurrence: None)
  Receive Date: 20111020
  Receipt Date: 20111003
  Transmission Date: 20120403
  Serious: Yes (Life-Threatening, Hospitalization)
  Sender: FDA-Public Use
  Company Number: US-BAYER-200935633NA

PATIENT
  Age: 19 Year
  Sex: Female
  Weight: 51.701 kg

DRUGS (13)
  1. DIGOXIN [Concomitant]
     Dosage: UNK
     Dates: end: 20090104
  2. JEVITY [Concomitant]
  3. YAZ [Suspect]
     Indication: CONTRACEPTION
     Route: 048
     Dates: start: 20070101, end: 20080101
  4. GENTAMICIN [Concomitant]
  5. CARVEDILOL [Concomitant]
     Dosage: UNK UNK, QD
     Dates: start: 20090104
  6. FLAGYL [Concomitant]
     Indication: SEPSIS
  7. BACLOFEN [Concomitant]
  8. PROTONIX [Concomitant]
  9. LOVENOX [Concomitant]
  10. COREG [Concomitant]
  11. ZOSYN [Concomitant]
  12. ATIVAN [Concomitant]
  13. VALPROIC ACID [Concomitant]
     Indication: CONVULSION PROPHYLAXIS

REACTIONS (3)
  - BRAIN INJURY [None]
  - HYPOXIC-ISCHAEMIC ENCEPHALOPATHY [None]
  - CARDIAC ARREST [None]
